FAERS Safety Report 20223462 (Version 1)
Quarter: 2021Q4

REPORT INFORMATION
  Report Type: Report from Study
  Country: US (occurrence: US)
  Receive Date: 20211223
  Receipt Date: 20211223
  Transmission Date: 20220303
  Serious: Yes (Hospitalization)
  Sender: FDA-Public Use
  Company Number: US-BAYER-2021A258684

PATIENT
  Age: 66 Year
  Sex: Female
  Weight: 65.76 kg

DRUGS (3)
  1. ADEMPAS [Suspect]
     Active Substance: RIOCIGUAT
     Indication: Pulmonary arterial hypertension
     Dosage: UNK
     Dates: start: 20210331
  2. ADEMPAS [Suspect]
     Active Substance: RIOCIGUAT
     Indication: Pulmonary arterial hypertension
     Dosage: 2.5 MG, TID
     Route: 048
     Dates: start: 2021
  3. REMODULIN [Concomitant]
     Active Substance: TREPROSTINIL
     Dosage: UNK

REACTIONS (8)
  - Hospitalisation [Not Recovered/Not Resolved]
  - Palpitations [None]
  - Hypotension [None]
  - Pain in extremity [None]
  - Dyspepsia [Recovering/Resolving]
  - Dyspnoea exertional [Not Recovered/Not Resolved]
  - Epistaxis [None]
  - Fatigue [None]

NARRATIVE: CASE EVENT DATE: 20210101
